FAERS Safety Report 4667509-7 (Version None)
Quarter: 2005Q2

REPORT INFORMATION
  Report Type: 
  Country: None (occurrence: None)
  Receive Date: 20050519
  Receipt Date: 20050519
  Transmission Date: 20051028
  Serious: Yes (Hospitalization)
  Sender: FDA-Public Use
  Company Number: None

PATIENT
  Sex: Female

DRUGS (3)
  1. BUSULFAN [Suspect]
     Indication: LYMPHOMA
     Dosage: 180 MG   DAILY   INTRAVENOU
     Route: 042
     Dates: start: 20050316, end: 20050319
  2. FLUDARABINE [Suspect]
     Dosage: 40 MG   DAILY   INTRAVENOU
     Route: 042
     Dates: start: 20050315, end: 20050319
  3. CAMPATH [Concomitant]

REACTIONS (2)
  - HERPES SIMPLEX [None]
  - PYREXIA [None]
